FAERS Safety Report 11642895 (Version 1)
Quarter: 2015Q4

REPORT INFORMATION
  Report Type: Report from Study
  Country: CN (occurrence: CN)
  Receive Date: 20151020
  Receipt Date: 20151020
  Transmission Date: 20160304
  Serious: Yes (Other)
  Sender: FDA-Public Use
  Company Number: CN-ROCHE-1647847

PATIENT

DRUGS (4)
  1. RITUXIMAB [Suspect]
     Active Substance: RITUXIMAB
     Indication: IMMUNE THROMBOCYTOPENIC PURPURA
     Dosage: FOR 1 H TO 2 H WAS PERFORMED ON DAYS 1, 8, 15, AND 22 FOR 30 MIN
     Route: 042
  2. RECOMBINANT HUMAN THROMBOPOIETIN [Suspect]
     Active Substance: THROMBOPOIETIN
     Indication: IMMUNE THROMBOCYTOPENIC PURPURA
     Dosage: 300 MCG/KG/D IH FOR 14 D.
     Route: 065
  3. CHLORPHENIRAMINE MALEATE. [Concomitant]
     Active Substance: CHLORPHENIRAMINE MALEATE
     Route: 048
  4. METHYLPREDNISOLONE. [Suspect]
     Active Substance: METHYLPREDNISOLONE
     Indication: IMMUNE THROMBOCYTOPENIC PURPURA
     Route: 042

REACTIONS (1)
  - Coagulopathy [Unknown]
